FAERS Safety Report 5023780-3 (Version None)
Quarter: 2006Q2

REPORT INFORMATION
  Report Type: 
  Country: None (occurrence: None)
  Receive Date: 20060606
  Receipt Date: 20060523
  Transmission Date: 20061013
  Serious: Yes (Life-Threatening, Hospitalization)
  Sender: FDA-Public Use
  Company Number: HQWYE223408MAY06

PATIENT
  Age: 33 Year
  Sex: Female

DRUGS (3)
  1. RAPAMUNE [Suspect]
     Indication: PROPHYLAXIS AGAINST TRANSPLANT REJECTION
     Dosage: 10 MG 1X PER 1 DAY, ORAL
     Route: 048
     Dates: start: 20051101, end: 20060510
  2. CELLCEPT [Concomitant]
  3. PREDNISONE TAB [Concomitant]

REACTIONS (8)
  - DRUG TOXICITY [None]
  - HAEMOLYTIC URAEMIC SYNDROME [None]
  - IMMUNOSUPPRESSION [None]
  - NAUSEA [None]
  - PLASMAPHERESIS [None]
  - RESPIRATORY FAILURE [None]
  - SEPSIS [None]
  - VOMITING [None]
